FAERS Safety Report 6150617-1 (Version None)
Quarter: 2009Q2

REPORT INFORMATION
  Report Type: 
  Country: None (occurrence: None)
  Receive Date: 20090409
  Receipt Date: 20090330
  Transmission Date: 20091009
  Serious: Yes (Disabling)
  Sender: FDA-Public Use
  Company Number: US-SANOFI-SYNTHELABO-A03200900963

PATIENT
  Sex: Male

DRUGS (2)
  1. AMBIEN [Suspect]
     Indication: SLEEP DISORDER
     Dosage: 1/3 FOR SLEEP AND REPEATED ANOTHER 1/3 IF AWOKE IN THE MIDDLE OF THE NIGHT
     Route: 048
     Dates: start: 20060101, end: 20080101
  2. ZOLPIDEM [Suspect]
     Indication: SLEEP DISORDER
     Dosage: 1/3 FOR SLEEP AND REPEATED ANOTHER 1/3 IF AWOKE IN THE MIDDLE OF THE NIGHT
     Route: 048
     Dates: start: 20080101, end: 20090205

REACTIONS (8)
  - ASTHENIA [None]
  - DEPRESSION [None]
  - DISTURBANCE IN ATTENTION [None]
  - FEELING COLD [None]
  - HYPERHIDROSIS [None]
  - IMMUNODEFICIENCY [None]
  - NASOPHARYNGITIS [None]
  - WRONG TECHNIQUE IN DRUG USAGE PROCESS [None]
